FAERS Safety Report 24979521 (Version 1)
Quarter: 2025Q1

REPORT INFORMATION
  Report Type: Report from Study
  Country: CA (occurrence: CA)
  Receive Date: 20250218
  Receipt Date: 20250218
  Transmission Date: 20250409
  Serious: Yes (Other)
  Sender: TAKEDA
  Company Number: CA-TAKEDA-2025TUS015662

PATIENT
  Age: 55 Year
  Sex: Female

DRUGS (14)
  1. VEDOLIZUMAB [Suspect]
     Active Substance: VEDOLIZUMAB
     Indication: Crohn^s disease
  2. VEDOLIZUMAB [Suspect]
     Active Substance: VEDOLIZUMAB
     Dosage: 300 MILLIGRAM, Q4WEEKS
     Dates: start: 20211018
  3. PREDNISONE [Concomitant]
     Active Substance: PREDNISONE
  4. DIVALPROEX SODIUM [Concomitant]
     Active Substance: DIVALPROEX SODIUM
  5. METOPROLOL [Concomitant]
     Active Substance: METOPROLOL
  6. PROPRANOLOL [Concomitant]
     Active Substance: PROPRANOLOL HYDROCHLORIDE
  7. QUETIAPINE [Concomitant]
     Active Substance: QUETIAPINE
  8. LORAZEPAM [Concomitant]
     Active Substance: LORAZEPAM
     Indication: Sleep disorder
  9. TOPIRAMATE [Concomitant]
     Active Substance: TOPIRAMATE
  10. VITAMIN D [Concomitant]
     Active Substance: VITAMIN D NOS
  11. CALCIUM [Concomitant]
     Active Substance: CALCIUM
  12. OMEGA 3 [Concomitant]
     Active Substance: CAPSAICIN
  13. TYLENOL ARTHRITIS PAIN [Concomitant]
     Active Substance: ACETAMINOPHEN
  14. AMANTADINE [Concomitant]
     Active Substance: AMANTADINE

REACTIONS (2)
  - Limb mass [Recovering/Resolving]
  - Off label use [Unknown]

NARRATIVE: CASE EVENT DATE: 20211018
